FAERS Safety Report 9186479 (Version 1)
Quarter: 2013Q1

REPORT INFORMATION
  Report Type: Spontaneous
  Country: SE (occurrence: SE)
  Receive Date: 20130325
  Receipt Date: 20130325
  Transmission Date: 20140127
  Serious: Yes (Other)
  Sender: FDA-Public Use
  Company Number: SE-JNJFOC-2005150017

PATIENT
  Age: 49 Year
  Sex: Male

DRUGS (2)
  1. IPREN [Suspect]
     Indication: ARTHROPATHY
     Dosage: DAILY DOSE TEXT: 400 MG TID
     Route: 048
     Dates: start: 200509, end: 200509
  2. IPREN [Suspect]
     Indication: ARTHRALGIA
     Dosage: DAILY DOSE TEXT: 400 MG TID
     Route: 048
     Dates: start: 200509, end: 200509

REACTIONS (1)
  - Hallucination [Recovered/Resolved]
